FAERS Safety Report 4764336-7 (Version None)
Quarter: 2005Q3

REPORT INFORMATION
  Report Type: 
  Country: None (occurrence: None)
  Receive Date: 20050907
  Receipt Date: 20050830
  Transmission Date: 20060218
  Serious: Yes (Other)
  Sender: FDA-Public Use
  Company Number: 200510423BYL

PATIENT
  Age: 68 Year
  Sex: Male

DRUGS (6)
  1. ADALAT [Suspect]
     Indication: ESSENTIAL HYPERTENSION
     Dosage: 20 MG, QD, ORAL
     Route: 048
     Dates: start: 20041210
  2. NU-LOTAN [Concomitant]
  3. ASPIRIN [Concomitant]
  4. MAINTATE [Concomitant]
  5. LIPITOR [Concomitant]
  6. ALLOPURINOL [Concomitant]

REACTIONS (2)
  - CEREBRAL INFARCTION [None]
  - FACIAL PALSY [None]
